FAERS Safety Report 10008735 (Version 1)
Quarter: 2014Q1

REPORT INFORMATION
  Report Type: Spontaneous
  Country: US (occurrence: US)
  Receive Date: 20140312
  Receipt Date: 20140312
  Transmission Date: 20141002
  Serious: No
  Sender: FDA-Public Use
  Company Number: US-INCYTE CORPORATION-2012IN000363

PATIENT
  Age: 69 Year
  Sex: Female

DRUGS (3)
  1. JAKAFI [Suspect]
     Indication: POLYCYTHAEMIA VERA
     Dosage: 20 MG, BID
     Route: 048
  2. SYNTHROID [Concomitant]
     Dosage: 125 MCG, QD
  3. HYZAAR [Concomitant]
     Dosage: 12.5 MG, QD

REACTIONS (1)
  - Sinusitis [Not Recovered/Not Resolved]
